FAERS Safety Report 19948672 (Version 2)
Quarter: 2021Q4

REPORT INFORMATION
  Report Type: Spontaneous
  Country: ES (occurrence: ES)
  Receive Date: 20211013
  Receipt Date: 20211108
  Transmission Date: 20220303
  Serious: Yes (Other)
  Sender: FDA-Public Use
  Company Number: ES-GW PHARMA-202109ESGW04573

PATIENT
  Age: 24 Year
  Sex: Female
  Weight: 60 kg

DRUGS (7)
  1. TOPIRAMATE [Suspect]
     Active Substance: TOPIRAMATE
     Indication: Product used for unknown indication
     Dosage: 50 MILLIGRAM, TWO TIMES A DAY
     Route: 065
     Dates: start: 202003
  2. VALPROIC ACID [Suspect]
     Active Substance: VALPROIC ACID
     Indication: Product used for unknown indication
     Dosage: 600 MILLIGRAM, TWO TIMES A DAY
     Route: 065
     Dates: start: 202003
  3. CARBAMAZEPINE [Suspect]
     Active Substance: CARBAMAZEPINE
     Indication: Product used for unknown indication
     Dosage: 5 MILLIGRAM, ONCE A DAY
     Route: 065
     Dates: start: 202003
  4. CANNABIDIOL [Suspect]
     Active Substance: CANNABIDIOL
     Indication: Lennox-Gastaut syndrome
     Dosage: UNK
     Route: 048
     Dates: start: 202003, end: 202003
  5. CANNABIDIOL [Suspect]
     Active Substance: CANNABIDIOL
     Dosage: 2.5 MILLIGRAM, EVERY WEEK
     Route: 048
     Dates: start: 202003, end: 2021
  6. CANNABIDIOL [Suspect]
     Active Substance: CANNABIDIOL
     Dosage: 12 MILLIGRAM/KILOGRAM
     Route: 048
     Dates: start: 202104, end: 2021
  7. CANNABIDIOL [Suspect]
     Active Substance: CANNABIDIOL
     Dosage: 13 MILLIGRAM/KILOGRAM
     Route: 065
     Dates: start: 202107

REACTIONS (3)
  - Seizure [Recovered/Resolved]
  - Irritability [Unknown]
  - Therapeutic response unexpected [Unknown]

NARRATIVE: CASE EVENT DATE: 20200101
